FAERS Safety Report 6286800-4 (Version None)
Quarter: 2009Q3

REPORT INFORMATION
  Report Type: 
  Country: None (occurrence: None)
  Receive Date: 20090728
  Receipt Date: 20090721
  Transmission Date: 20100115
  Serious: Yes (Hospitalization, Other)
  Sender: FDA-Public Use
  Company Number: US-AVENTIS-200916373US

PATIENT
  Sex: Female
  Weight: 113.63 kg

DRUGS (1)
  1. LANTUS [Suspect]
     Route: 058
     Dates: start: 20060101

REACTIONS (3)
  - BREAST CANCER [None]
  - CARDIAC DISORDER [None]
  - COLON CANCER [None]
